FAERS Safety Report 8400845-7 (Version None)
Quarter: 2012Q2

REPORT INFORMATION
  Report Type: 
  Country: None (occurrence: None)
  Receive Date: 20120601
  Receipt Date: 20120523
  Transmission Date: 20120825
  Serious: Yes (Hospitalization)
  Sender: FDA-Public Use
  Company Number: NZ-B.I. PHARMACEUTICALS,INC./RIDGEFIELD-2012-AU-00970AU

PATIENT
  Sex: Female

DRUGS (5)
  1. PRADAXA [Suspect]
     Indication: CEREBROVASCULAR ACCIDENT PROPHYLAXIS
     Dosage: 300 MG
     Dates: start: 20120224, end: 20120403
  2. SIMVASTATIN [Concomitant]
  3. METOPROLOL TARTRATE [Concomitant]
  4. COLECALCIFEROL [Concomitant]
  5. ACETAMINOPHEN [Concomitant]

REACTIONS (4)
  - CARDIOVASCULAR DISORDER [None]
  - LEFT VENTRICULAR DYSFUNCTION [None]
  - CHEST PAIN [None]
  - MYOCARDIAL INFARCTION [None]
